FAERS Safety Report 4406490-2 (Version None)
Quarter: 2004Q3

REPORT INFORMATION
  Report Type: 
  Country: None (occurrence: None)
  Receive Date: 20040716
  Receipt Date: 20040705
  Transmission Date: 20050211
  Serious: Yes (Hospitalization)
  Sender: FDA-Public Use
  Company Number: 2004AP03310

PATIENT
  Age: 86 Year
  Sex: Male

DRUGS (2)
  1. CASODEX [Suspect]
     Indication: PROSTATE CANCER
     Dosage: 80 MG DAILY PO
     Dates: start: 20040610, end: 20040622
  2. ZOLADEX [Suspect]
     Indication: PROSTATE CANCER
     Dosage: 3.6 MG Q4WK SQ
     Dates: start: 20040616, end: 20040616

REACTIONS (4)
  - DRUG HYPERSENSITIVITY [None]
  - FACE OEDEMA [None]
  - LARYNGEAL OEDEMA [None]
  - RASH [None]
